FAERS Safety Report 23034003 (Version 1)
Quarter: 2023Q4

REPORT INFORMATION
  Report Type: Spontaneous
  Country: US (occurrence: US)
  Receive Date: 20231005
  Receipt Date: 20231005
  Transmission Date: 20240110
  Serious: Yes (Life-Threatening, Hospitalization, Other)
  Sender: FDA-Public Use
  Company Number: US-ABBVIE-5411664

PATIENT
  Age: 61 Year
  Sex: Female

DRUGS (1)
  1. DIVALPROEX SODIUM [Suspect]
     Active Substance: DIVALPROEX SODIUM
     Indication: Bipolar disorder
     Dosage: 200 TABLETS
     Route: 048

REACTIONS (6)
  - Suicidal ideation [Unknown]
  - Intentional overdose [Unknown]
  - Hypothermia [Unknown]
  - Hypotension [Unknown]
  - Bradypnoea [Unknown]
  - Hyperammonaemia [Unknown]
